FAERS Safety Report 8443832-5 (Version None)
Quarter: 2012Q2

REPORT INFORMATION
  Report Type: 
  Country: None (occurrence: None)
  Receive Date: 20120323
  Receipt Date: 20110817
  Transmission Date: 20120825
  Serious: Yes (Disabling)
  Sender: FDA-Public Use
  Company Number: 163-21880-11060128

PATIENT
  Age: 80 Year
  Sex: Male

DRUGS (7)
  1. REVLIMID [Suspect]
  2. DEXAMETHASONE [Concomitant]
  3. REVLIMID [Suspect]
     Indication: MULTIPLE MYELOMA
     Dosage: 25 MG, 1 IN 1 D, PO, 10 MG, DAILY X 21, PO
     Route: 048
     Dates: start: 20110601
  4. REVLIMID [Suspect]
     Indication: MULTIPLE MYELOMA
     Dosage: 25 MG, 1 IN 1 D, PO, 10 MG, DAILY X 21, PO
     Route: 048
     Dates: start: 20110101
  5. GAMMAGLOBULIN (IMMUNOGLOBULIN) [Concomitant]
  6. VICODIN [Concomitant]
  7. COUMADIN [Concomitant]

REACTIONS (1)
  - THROMBOCYTOPENIA [None]
